FAERS Safety Report 15568886 (Version 4)
Quarter: 2020Q3

REPORT INFORMATION
  Report Type: Other
  Country: DE (occurrence: DE)
  Receive Date: 20181031
  Receipt Date: 20200930
  Transmission Date: 20201102
  Serious: Yes (Other)
  Sender: FDA-Public Use
  Company Number: DE-ROCHE-2161495

PATIENT
  Age: 48 Year
  Sex: Female

DRUGS (6)
  1. FAMPYRA [Concomitant]
     Active Substance: DALFAMPRIDINE
     Dosage: 1?0?1
  2. DEKRISTOL [Concomitant]
     Active Substance: CHOLECALCIFEROL
  3. FLU VACCINE [Concomitant]
     Active Substance: INFLUENZA VIRUS VACCINE
     Dates: start: 20180903
  4. OCREVUS [Suspect]
     Active Substance: OCRELIZUMAB
     Indication: SECONDARY PROGRESSIVE MULTIPLE SCLEROSIS
     Dosage: SUBSEQUENT DOSE: 01/MAY/2018, 01/MAY/2018
     Route: 042
     Dates: start: 20180417, end: 20180417
  5. LACTULOSE. [Concomitant]
     Active Substance: LACTULOSE
  6. LYRICA [Concomitant]
     Active Substance: PREGABALIN
     Dosage: 1?0?2, 100?200 MG (150 MG)

REACTIONS (11)
  - Rash erythematous [Recovered/Resolved]
  - Cystitis noninfective [Recovered/Resolved]
  - Infection susceptibility increased [Not Recovered/Not Resolved]
  - Fatigue [Not Recovered/Not Resolved]
  - Multiple sclerosis relapse [Not Recovered/Not Resolved]
  - Bronchitis [Recovered/Resolved]
  - Viral pharyngitis [Recovered/Resolved]
  - Upper respiratory tract infection [Recovered/Resolved]
  - Blood immunoglobulin M increased [Not Recovered/Not Resolved]
  - Nasopharyngitis [Recovered/Resolved]
  - Drug ineffective [Not Recovered/Not Resolved]

NARRATIVE: CASE EVENT DATE: 20180613
